FAERS Safety Report 7966303-9 (Version None)
Quarter: 2011Q4

REPORT INFORMATION
  Report Type: 
  Country: None (occurrence: None)
  Receive Date: 20111208
  Receipt Date: 20111129
  Transmission Date: 20120403
  Serious: Yes (Other)
  Sender: FDA-Public Use
  Company Number: US-ASTRAZENECA-2011SE72392

PATIENT
  Age: 39 Year
  Sex: Female
  Weight: 77.1 kg

DRUGS (3)
  1. LITHIUM [Concomitant]
     Indication: BIPOLAR DISORDER
     Dosage: 1 TABLET IN MORNING AND 2 TABLET AT NIGHT
     Route: 048
     Dates: start: 20110301
  2. SEROQUEL [Suspect]
     Indication: BIPOLAR DISORDER
     Dosage: 1 TABLET IN MORNING, 1 TABLET IN AFTERNOON AND 3 TABLET AT BED TIME
     Route: 048
     Dates: start: 20110301
  3. PROPRANOLOL [Concomitant]
     Indication: MIGRAINE
     Route: 048
     Dates: start: 20010101

REACTIONS (7)
  - VOMITING [None]
  - DRUG DOSE OMISSION [None]
  - FEELING OF DESPAIR [None]
  - HEADACHE [None]
  - MIGRAINE [None]
  - ABDOMINAL PAIN UPPER [None]
  - ABDOMINAL PAIN [None]
